FAERS Safety Report 6282873-3 (Version None)
Quarter: 2009Q3

REPORT INFORMATION
  Report Type: 
  Country: None (occurrence: None)
  Receive Date: 20090724
  Receipt Date: 20090713
  Transmission Date: 20100115
  Serious: Yes (Hospitalization)
  Sender: FDA-Public Use
  Company Number: US-ELI_LILLY_AND_COMPANY-US200906006880

PATIENT
  Sex: Female

DRUGS (16)
  1. FORTEO [Suspect]
     Dosage: UNK, UNK
     Dates: start: 20070901, end: 20090401
  2. FORTEO [Suspect]
     Dates: start: 20090101
  3. AMIODARONE [Concomitant]
  4. FUROSEMIDE [Concomitant]
  5. METOPROLOL SUCCINATE [Concomitant]
  6. POTASSIUM CHLORIDE [Concomitant]
  7. COZAAR [Concomitant]
  8. VITAMIN D [Concomitant]
     Dosage: 50000 IU, 2/W
  9. LEVOXYL [Concomitant]
     Indication: THYROID DISORDER
  10. ARICEPT [Concomitant]
  11. SPIRIVA [Concomitant]
  12. ASPIRIN [Concomitant]
     Dosage: UNK, DAILY (1/D)
  13. CITRACAL [Concomitant]
  14. CENTRUM SILVER [Concomitant]
  15. AMOXICILLIN [Concomitant]
     Dosage: USES BEFORE DENTIST VISITS
  16. MIRALAX [Concomitant]

REACTIONS (8)
  - ANXIETY [None]
  - ATRIAL FIBRILLATION [None]
  - BREATH SOUNDS ABNORMAL [None]
  - CARDIAC FAILURE CONGESTIVE [None]
  - CHRONIC OBSTRUCTIVE PULMONARY DISEASE [None]
  - FOOT OPERATION [None]
  - RESPIRATORY TRACT CONGESTION [None]
  - SOMNOLENCE [None]
